FAERS Safety Report 9803098 (Version 1)
Quarter: 2014Q1

REPORT INFORMATION
  Report Type: Spontaneous
  Country: US (occurrence: None)
  Receive Date: 20140107
  Receipt Date: 20140107
  Transmission Date: 20141002
  Serious: Yes (Disabling)
  Sender: FDA-Public Use
  Company Number: None

PATIENT
  Age: 29 Year
  Sex: Female
  Weight: 81.19 kg

DRUGS (2)
  1. CEPHALEXIN [Suspect]
     Indication: PHARYNGITIS STREPTOCOCCAL
     Dosage: ONE CAPSULE TWICE DAILY TAKEN BY MOUTH
     Route: 048
  2. CEPHALEXIN [Suspect]
     Indication: PHARYNGITIS
     Dosage: ONE CAPSULE TWICE DAILY TAKEN BY MOUTH
     Route: 048

REACTIONS (13)
  - Fatigue [None]
  - Asthenia [None]
  - Paraesthesia [None]
  - Hypoaesthesia [None]
  - Pruritus [None]
  - Nausea [None]
  - Syncope [None]
  - Muscular weakness [None]
  - Vulvovaginal discomfort [None]
  - Vulvovaginal dryness [None]
  - Paralysis [None]
  - Blood calcium increased [None]
  - Vaginal discharge [None]
